FAERS Safety Report 14676564 (Version 1)
Quarter: 2018Q1

REPORT INFORMATION
  Report Type: Spontaneous
  Country: DK (occurrence: DK)
  Receive Date: 20180324
  Receipt Date: 20180324
  Transmission Date: 20180509
  Serious: Yes (Life-Threatening, Hospitalization)
  Sender: FDA-Public Use
  Company Number: DK-ROCHE-2090124

PATIENT
  Age: 52 Year
  Sex: Female

DRUGS (5)
  1. OLANZAPINE. [Concomitant]
     Active Substance: OLANZAPINE
     Indication: NAUSEA
     Dosage: AS REQUIRED
     Route: 048
     Dates: start: 20171117
  2. PREDNISOLONE. [Concomitant]
     Active Substance: PREDNISOLONE
     Indication: NAUSEA
     Route: 048
     Dates: start: 20171007
  3. PACLITAXEL ACTAVIS [Concomitant]
     Active Substance: PACLITAXEL
     Indication: CERVIX CANCER METASTATIC
     Route: 042
     Dates: start: 20170907
  4. CISPLATIN ACCORD [Concomitant]
     Active Substance: CISPLATIN
     Indication: CERVIX CANCER METASTATIC
     Route: 042
     Dates: start: 20170907
  5. AVASTIN [Suspect]
     Active Substance: BEVACIZUMAB
     Indication: CERVIX CANCER METASTATIC
     Route: 042
     Dates: start: 20170907

REACTIONS (4)
  - Large intestine perforation [Recovered/Resolved with Sequelae]
  - Colostomy [Not Recovered/Not Resolved]
  - Gastrointestinal necrosis [Recovered/Resolved with Sequelae]
  - Intestinal resection [Recovered/Resolved with Sequelae]

NARRATIVE: CASE EVENT DATE: 20171101
